FAERS Safety Report 19179118 (Version 1)
Quarter: 2021Q2

REPORT INFORMATION
  Report Type: Spontaneous
  Country: CO (occurrence: CO)
  Receive Date: 20210426
  Receipt Date: 20210426
  Transmission Date: 20210717
  Serious: Yes (Death, Other)
  Sender: FDA-Public Use
  Company Number: CO-SA-2021SA135625

PATIENT
  Age: 76 Year
  Sex: Female

DRUGS (1)
  1. SOLIQUA 100/33 [Suspect]
     Active Substance: INSULIN GLARGINE\LIXISENATIDE
     Indication: TYPE 2 DIABETES MELLITUS
     Dosage: 25 (QD)
     Route: 058
     Dates: start: 20200505, end: 20210121

REACTIONS (2)
  - Kidney infection [Fatal]
  - Jaundice [Fatal]

NARRATIVE: CASE EVENT DATE: 20210121
